FAERS Safety Report 16221974 (Version 1)
Quarter: 2019Q2

REPORT INFORMATION
  Report Type: Report from Study
  Country: None (occurrence: DE)
  Receive Date: 20190422
  Receipt Date: 20190422
  Transmission Date: 20190711
  Serious: Yes (Other)
  Sender: FDA-Public Use
  Company Number: DE-KADMON PHARMACEUTICALS, LLC-KAD-201811-01396

PATIENT
  Age: 68 Year
  Sex: Male
  Weight: 68 kg

DRUGS (14)
  1. METFORMIN AUROBINDO [Concomitant]
     Active Substance: METFORMIN HYDROCHLORIDE
  2. RIBAVIRIN. [Suspect]
     Active Substance: RIBAVIRIN
     Indication: CHRONIC HEPATITIS C
     Dosage: 1000 MG
     Route: 048
     Dates: start: 20150108
  3. NEBIVOLOL. [Concomitant]
     Active Substance: NEBIVOLOL
  4. PRAVASTATIN. [Concomitant]
     Active Substance: PRAVASTATIN
  5. NEVIRAPINE. [Concomitant]
     Active Substance: NEVIRAPINE
  6. EXFORGE [Concomitant]
     Active Substance: AMLODIPINE BESYLATE\VALSARTAN
  7. LAMIVUDIN AUROBINDO [Concomitant]
  8. ABACAVIR. [Concomitant]
     Active Substance: ABACAVIR
  9. ALLOPURINOL. [Concomitant]
     Active Substance: ALLOPURINOL
  10. RILPIVIRINE [Concomitant]
     Active Substance: RILPIVIRINE
  11. MOXONIDINE [Concomitant]
     Active Substance: MOXONIDINE
  12. DEKRISTOL [Concomitant]
     Active Substance: CHOLECALCIFEROL
  13. LEDIPASVIR/SOFOSBUVIR [Suspect]
     Active Substance: LEDIPASVIR\SOFOSBUVIR
     Indication: CHRONIC HEPATITIS C
     Dosage: 1 DOSAGE FORM
     Route: 048
     Dates: start: 20150108
  14. BISOPROLOL [Concomitant]
     Active Substance: BISOPROLOL

REACTIONS (4)
  - Anaemia [Unknown]
  - Depression [Recovering/Resolving]
  - Pancreatic failure [Unknown]
  - Nausea [Recovered/Resolved]

NARRATIVE: CASE EVENT DATE: 20150203
